FAERS Safety Report 9495072 (Version 1)
Quarter: 2013Q3

REPORT INFORMATION
  Report Type: Spontaneous
  Country: US (occurrence: US)
  Receive Date: 20130903
  Receipt Date: 20130903
  Transmission Date: 20140515
  Serious: No
  Sender: FDA-Public Use
  Company Number: US-JNJFOC-20130815873

PATIENT
  Age: 58 Year
  Sex: Female

DRUGS (1)
  1. INVEGA SUSTENNA [Suspect]
     Indication: PRODUCT USED FOR UNKNOWN INDICATION
     Route: 030
     Dates: start: 201302

REACTIONS (3)
  - Hypotension [Unknown]
  - Weight decreased [Unknown]
  - Migraine [Unknown]
